FAERS Safety Report 7658356-2 (Version None)
Quarter: 2011Q3

REPORT INFORMATION
  Report Type: 
  Country: None (occurrence: None)
  Receive Date: 20110805
  Receipt Date: 20110726
  Transmission Date: 20111222
  Serious: Yes (Other)
  Sender: FDA-Public Use
  Company Number: ZA-JNJFOC-20110706978

PATIENT
  Sex: Female
  Weight: 52 kg

DRUGS (4)
  1. REVELLEX [Suspect]
     Route: 042
     Dates: start: 20110704, end: 20110715
  2. REVELLEX [Suspect]
     Indication: CROHN'S DISEASE
     Route: 042
     Dates: start: 20110107
  3. REVELLEX [Suspect]
     Dosage: SECOND INFUSION
     Route: 042
     Dates: start: 20110715, end: 20110715
  4. PREDNISONE [Concomitant]
     Indication: CROHN'S DISEASE
     Route: 048

REACTIONS (2)
  - HYPERSENSITIVITY [None]
  - INFUSION RELATED REACTION [None]
